FAERS Safety Report 21604624 (Version 1)
Quarter: 2022Q4

REPORT INFORMATION
  Report Type: Spontaneous
  Country: FR (occurrence: FR)
  Receive Date: 20221116
  Receipt Date: 20221116
  Transmission Date: 20230113
  Serious: Yes (Other)
  Sender: FDA-Public Use
  Company Number: None

PATIENT
  Age: 56 Year
  Sex: Female
  Weight: 41 kg

DRUGS (14)
  1. PEMETREXED [Suspect]
     Active Substance: PEMETREXED
     Indication: Lung carcinoma cell type unspecified stage IV
     Dosage: UNIT DOSE : 685 MG, FREQUENCY TIME : 3 WEEKS
     Dates: start: 20220321
  2. PEMETREXED [Suspect]
     Active Substance: PEMETREXED
     Dosage: UNIT DOSE : 700 MG, FREQUENCY TIME : 1 TOTAL
     Dates: start: 20220131, end: 20220131
  3. PEMETREXED [Suspect]
     Active Substance: PEMETREXED
     Dosage: UNIT DOSE : 685 MG, FREQUENCY TIME : 1 TOTAL
     Dates: start: 20220228, end: 20220228
  4. PEMETREXED [Suspect]
     Active Substance: PEMETREXED
     Dosage: UNIT DOSE : 700 MG, FREQUENCY TIME : 1 TOTAL
     Dates: start: 20220110, end: 20220110
  5. PEMETREXED [Suspect]
     Active Substance: PEMETREXED
     Dosage: UNIT DOSE : 700 MG, FREQUENCY TIME :1 TOTAL
     Dates: start: 20211209, end: 20211209
  6. KEYTRUDA [Suspect]
     Active Substance: PEMBROLIZUMAB
     Indication: Lung carcinoma cell type unspecified stage IV
     Dosage: UNIT DOSE : 200 MG,   FREQUENCY TIME  : 3 WEEKS
     Dates: start: 20220321
  7. KEYTRUDA [Suspect]
     Active Substance: PEMBROLIZUMAB
     Dosage: UNIT DOSE : 200 MG,   FREQUENCY TIME  :1 TOTAL
     Dates: start: 20220110, end: 20220110
  8. KEYTRUDA [Suspect]
     Active Substance: PEMBROLIZUMAB
     Dosage: UNIT DOSE : 200 MG,   FREQUENCY TIME  :1 TOTAL
     Dates: start: 20220131, end: 20220131
  9. KEYTRUDA [Suspect]
     Active Substance: PEMBROLIZUMAB
     Dosage: UNIT DOSE : 200 MG,   FREQUENCY TIME  :1 TOTAL
     Dates: start: 20211209, end: 20211209
  10. KEYTRUDA [Suspect]
     Active Substance: PEMBROLIZUMAB
     Dosage: UNIT DOSE : 200 MG,   FREQUENCY TIME  :1 TOTAL
     Dates: start: 20220228, end: 20220228
  11. CARBOPLATIN [Concomitant]
     Active Substance: CARBOPLATIN
     Indication: Lung carcinoma cell type unspecified stage IV
     Dosage: UNIT DOSE : 500 MG, FREQUENCY TIME : 1 TOTAL
     Dates: start: 20220228, end: 20220228
  12. CARBOPLATIN [Concomitant]
     Active Substance: CARBOPLATIN
     Dosage: UNIT DOSE : 500 MG, FREQUENCY TIME : 1 TOTAL
     Dates: start: 20220110, end: 20220110
  13. CARBOPLATIN [Concomitant]
     Active Substance: CARBOPLATIN
     Dosage: UNIT DOSE : 500 MG, FREQUENCY TIME : 1 TOTAL
     Dates: start: 20211209, end: 20211209
  14. CARBOPLATIN [Concomitant]
     Active Substance: CARBOPLATIN
     Dosage: UNIT DOSE : 500 MG, FREQUENCY TIME : 1 TOTAL
     Dates: start: 20220131, end: 20220131

REACTIONS (1)
  - Pericardial effusion [Not Recovered/Not Resolved]

NARRATIVE: CASE EVENT DATE: 20220901
